FAERS Safety Report 9214205 (Version 2)
Quarter: 2013Q3

REPORT INFORMATION
  Report Type: Spontaneous
  Country: US (occurrence: US)
  Receive Date: 20130405
  Receipt Date: 20130701
  Transmission Date: 20140515
  Serious: Yes (Hospitalization, Other)
  Sender: FDA-Public Use
  Company Number: US-UCBSA-002358

PATIENT
  Age: 37 Year
  Sex: Female
  Weight: 51 kg

DRUGS (6)
  1. VIMPAT [Suspect]
     Indication: COMPLEX PARTIAL SEIZURES
     Dosage: SLOWLY TITRATED OVER SEVERAL WEEKS TO 600MG/DAY
     Route: 048
     Dates: start: 20090717, end: 2009
  2. VIMPAT [Suspect]
     Indication: COMPLEX PARTIAL SEIZURES
     Route: 048
     Dates: start: 2009, end: 20091028
  3. VIMPAT [Suspect]
     Indication: COMPLEX PARTIAL SEIZURES
     Dosage: DISCONTINUED AT A DOSE OF 100MG/WEEK
     Route: 048
     Dates: start: 20091028, end: 200912
  4. PREGABALIN [Concomitant]
     Dosage: SLOWLY TAPERED AT A RATE OF 75MG/WEEK
  5. LAMOTRIGINE [Concomitant]
  6. CARBAMAZEPINE [Concomitant]
     Dosage: SLOWLY TAPERED TO 100MG/WEEK AND THEN DISCONTINUED

REACTIONS (3)
  - Atrial fibrillation [Recovered/Resolved]
  - Atrial flutter [Recovered/Resolved]
  - Overdose [Unknown]
